FAERS Safety Report 19889288 (Version 1)
Quarter: 2021Q3

REPORT INFORMATION
  Report Type: Report from Study
  Country: CA (occurrence: CA)
  Receive Date: 20210928
  Receipt Date: 20210928
  Transmission Date: 20211014
  Serious: Yes (Hospitalization)
  Sender: FDA-Public Use
  Company Number: CA-GLAXOSMITHKLINE-CA2021AMR162105

PATIENT
  Age: 85 Year
  Sex: Male

DRUGS (4)
  1. MEPOLIZUMAB [Suspect]
     Active Substance: MEPOLIZUMAB
     Indication: ASTHMA
     Dosage: 100 MG, Z , EVERY 4 WEEKS
     Route: 058
     Dates: start: 20180718
  2. PREDNISONE. [Suspect]
     Active Substance: PREDNISONE
     Dosage: 1 DF, Z (1 TAB EVERY 2 DAYS)
     Dates: start: 20210723, end: 20210807
  3. MEPOLIZUMAB [Suspect]
     Active Substance: MEPOLIZUMAB
     Indication: ASTHMA
     Dosage: 100 MG, Z (EVERY 4 WEEKS)
     Route: 058
     Dates: start: 20180718
  4. PREDNISONE. [Suspect]
     Active Substance: PREDNISONE
     Indication: DYSPNOEA
     Dosage: 8 DF, QD
     Route: 065
     Dates: start: 202107

REACTIONS (4)
  - Overdose [Unknown]
  - Hospitalisation [Unknown]
  - Depressed mood [Unknown]
  - Dyspnoea [Unknown]

NARRATIVE: CASE EVENT DATE: 20210713
